FAERS Safety Report 4627209-6 (Version None)
Quarter: 2005Q1

REPORT INFORMATION
  Report Type: 
  Country: None (occurrence: None)
  Receive Date: 20050330
  Receipt Date: 20050316
  Transmission Date: 20050727
  Serious: No
  Sender: FDA-Public Use
  Company Number: 213149

PATIENT
  Age: 61 Year
  Sex: Male
  Weight: 96.1 kg

DRUGS (9)
  1. AVASTIN [Suspect]
     Indication: GASTROOESOPHAGEAL CANCER
     Dosage: 5 MG/KG, Q2W, INTRAVENOUS
     Route: 042
     Dates: start: 20050310
  2. DOCETAXEL (DOCETAXEL) [Suspect]
     Indication: GASTROOESOPHAGEAL CANCER
     Dosage: 35 MG/M2, 1 WEEK, INTRAVENOUS
     Route: 042
     Dates: start: 20050310
  3. TRAMADOL HCL [Concomitant]
  4. TYLENOL [Concomitant]
  5. STOOL SOFTENER (STOOL SOFTENER NOS) [Concomitant]
  6. NEXIUM [Concomitant]
  7. FERROUS SULFATE TAB [Concomitant]
  8. CENTRUM SILVER MULTIVITAMIN (MULTIVITAMINS NOS, MINERALS NOS) [Concomitant]
  9. NAPROXEN [Concomitant]

REACTIONS (1)
  - ANAEMIA [None]
